FAERS Safety Report 9684577 (Version 2)
Quarter: 2013Q4

REPORT INFORMATION
  Report Type: Spontaneous
  Country: US (occurrence: US)
  Receive Date: 20131112
  Receipt Date: 20131112
  Transmission Date: 20140711
  Serious: No
  Sender: FDA-Public Use
  Company Number: US-AMGEN-USASP2013050107

PATIENT
  Age: 10 Year
  Sex: Female

DRUGS (4)
  1. EPOGEN [Suspect]
     Indication: RENAL FAILURE CHRONIC
     Dosage: UNK
     Route: 065
     Dates: start: 201305
  2. EPOGEN [Suspect]
  3. ARANESP [Suspect]
     Indication: RENAL FAILURE CHRONIC
     Dosage: 25 MUG, UNK
     Route: 058
  4. ARANESP [Suspect]

REACTIONS (4)
  - Haemoglobin abnormal [Unknown]
  - Rash pruritic [Recovered/Resolved]
  - Rash [Recovered/Resolved]
  - Hypersensitivity [Recovered/Resolved]
